FAERS Safety Report 16693185 (Version 2)
Quarter: 2019Q3

REPORT INFORMATION
  Report Type: Report from Study
  Country: AT (occurrence: AT)
  Receive Date: 20190812
  Receipt Date: 20190918
  Transmission Date: 20191004
  Serious: Yes (Hospitalization)
  Sender: FDA-Public Use
  Company Number: AT-CELGENEUS-AUT-20190801487

PATIENT
  Age: 76 Year
  Sex: Female
  Weight: 77.09 kg

DRUGS (6)
  1. CHLORHEXAMED [Concomitant]
     Indication: PROPHYLAXIS
     Route: 065
     Dates: start: 201904
  2. NEO EMEDYL [Concomitant]
     Indication: NAUSEA
     Route: 065
     Dates: start: 20190508
  3. VALACYCLOVIR [Concomitant]
     Active Substance: VALACYCLOVIR HYDROCHLORIDE
     Indication: INFECTION PROPHYLAXIS
     Route: 065
     Dates: start: 20190510
  4. AZACITIDINE. [Suspect]
     Active Substance: AZACITIDINE
     Indication: ACUTE MYELOID LEUKAEMIA
     Dosage: 135 MILLIGRAM
     Route: 058
     Dates: start: 20190417, end: 20190617
  5. PF-04449913 [Suspect]
     Active Substance: GLASDEGIB
     Indication: ACUTE MYELOID LEUKAEMIA
     Route: 065
     Dates: start: 20190417, end: 20190520
  6. DAFLON [Concomitant]
     Indication: HAEMORRHOIDS
     Route: 065
     Dates: start: 201905

REACTIONS (2)
  - Pseudomembranous colitis [Recovered/Resolved]
  - Haemorrhoidal haemorrhage [Recovered/Resolved]

NARRATIVE: CASE EVENT DATE: 20190606
